FAERS Safety Report 4685493-7 (Version None)
Quarter: 2005Q2

REPORT INFORMATION
  Report Type: 
  Country: None (occurrence: None)
  Receive Date: 20050608
  Receipt Date: 20050523
  Transmission Date: 20051028
  Serious: Yes (Other)
  Sender: FDA-Public Use
  Company Number: PHEH2005US05848

PATIENT
  Age: 58 Year
  Sex: Female

DRUGS (5)
  1. ZOMETA [Suspect]
     Indication: BREAST CANCER METASTATIC
     Dosage: 4 MG EVERY 4 WEEKS
     Route: 042
     Dates: start: 20030310, end: 20050112
  2. ARIMIDEX [Concomitant]
     Indication: BREAST CANCER
     Dosage: 1 MG, QD
     Dates: start: 19960208, end: 20041010
  3. MEGACE [Concomitant]
     Indication: BREAST CANCER
     Dosage: 40 MG, BID
     Dates: start: 20011214
  4. HERCEPTIN [Concomitant]
     Indication: BREAST CANCER
     Dosage: 6 MG/KG EVERY 3 WEEKS
     Dates: start: 20041103
  5. HALOTESTIN [Concomitant]
     Indication: BREAST CANCER
     Dosage: 10 MG, TID
     Dates: start: 20030307

REACTIONS (3)
  - ASEPTIC NECROSIS BONE [None]
  - IMPAIRED HEALING [None]
  - TOOTH EXTRACTION [None]
